FAERS Safety Report 7003702-6 (Version None)
Quarter: 2010Q3

REPORT INFORMATION
  Report Type: 
  Country: None (occurrence: None)
  Receive Date: 20100920
  Receipt Date: 20091019
  Transmission Date: 20110219
  Serious: No
  Sender: FDA-Public Use
  Company Number: US-WYE-H11762809

PATIENT
  Sex: Female
  Weight: 59.02 kg

DRUGS (4)
  1. PROTONIX [Suspect]
     Indication: GASTRITIS
     Dosage: UNSPECIFIED
     Route: 048
  2. PROTONIX [Suspect]
     Indication: OESOPHAGITIS
  3. PROTONIX [Suspect]
     Indication: OROPHARYNGEAL PAIN
  4. PROTONIX [Suspect]
     Indication: DYSPHONIA

REACTIONS (6)
  - CONDITION AGGRAVATED [None]
  - DRUG INEFFECTIVE [None]
  - DYSPEPSIA [None]
  - GASTRITIS [None]
  - OESOPHAGITIS [None]
  - WEIGHT DECREASED [None]
